FAERS Safety Report 20219357 (Version 1)
Quarter: 2021Q4

REPORT INFORMATION
  Report Type: Spontaneous
  Country: RU (occurrence: RU)
  Receive Date: 20211222
  Receipt Date: 20211222
  Transmission Date: 20220303
  Serious: Yes (Other)
  Sender: FDA-Public Use
  Company Number: RU-BoehringerIngelheim-2021-BI-143984

PATIENT
  Sex: Male
  Weight: 122 kg

DRUGS (1)
  1. PRADAXA [Suspect]
     Active Substance: DABIGATRAN ETEXILATE MESYLATE
     Indication: Atrial fibrillation
     Route: 048
     Dates: start: 202012

REACTIONS (1)
  - Skin discolouration [Not Recovered/Not Resolved]
